FAERS Safety Report 25764035 (Version 1)
Quarter: 2025Q3

REPORT INFORMATION
  Report Type: Spontaneous
  Country: US (occurrence: US)
  Receive Date: 20250905
  Receipt Date: 20250905
  Transmission Date: 20251021
  Serious: Yes (Other)
  Sender: COOPERSURGICAL
  Company Number: US-COOPERSURGICAL, INC.-2025CPS006296

PATIENT
  Sex: Female
  Weight: 72.562 kg

DRUGS (1)
  1. PARAGARD T 380A [Suspect]
     Active Substance: COPPER
     Indication: Contraception
     Route: 015
     Dates: start: 20070326

REACTIONS (16)
  - Reproductive complication associated with device [Not Recovered/Not Resolved]
  - Infertility female [Not Recovered/Not Resolved]
  - Surgery [Recovered/Resolved]
  - Salpingectomy [Recovered/Resolved]
  - Ectopic pregnancy [Recovered/Resolved]
  - Habitual abortion [Unknown]
  - Device breakage [Recovered/Resolved]
  - Complication of device removal [Recovered/Resolved]
  - Foreign body in reproductive tract [Recovered/Resolved]
  - Embedded device [Recovered/Resolved]
  - Emotional distress [Not Recovered/Not Resolved]
  - Procedural haemorrhage [Recovered/Resolved]
  - Vulvovaginal pain [Unknown]
  - Pain [Not Recovered/Not Resolved]
  - Off label use [Unknown]
  - Device use issue [Unknown]

NARRATIVE: CASE EVENT DATE: 20170101
